FAERS Safety Report 6720098-5 (Version None)
Quarter: 2010Q2

REPORT INFORMATION
  Report Type: 
  Country: None (occurrence: None)
  Receive Date: 20100511
  Receipt Date: 20100504
  Transmission Date: 20101027
  Serious: Yes (Other)
  Sender: FDA-Public Use
  Company Number: US-JNJCH-2010011059

PATIENT
  Age: 3 Year
  Sex: Female
  Weight: 17.7 kg

DRUGS (2)
  1. CHILDREN'S ZYRTEC ALLERGY [Suspect]
     Indication: FOOD ALLERGY
     Dosage: TEXT:5ML 1X A DAY
     Route: 048
  2. AMOXICILLIN [Concomitant]
     Indication: EAR INFECTION
     Dosage: TEXT:UNKNOWN
     Route: 065

REACTIONS (6)
  - ANXIETY [None]
  - HALLUCINATION [None]
  - OFF LABEL USE [None]
  - POOR QUALITY DRUG ADMINISTERED [None]
  - PRODUCT QUALITY ISSUE [None]
  - WRONG DRUG ADMINISTERED [None]
